FAERS Safety Report 5321465-7 (Version None)
Quarter: 2007Q2

REPORT INFORMATION
  Report Type: 
  Country: None (occurrence: None)
  Receive Date: 20070510
  Receipt Date: 20070503
  Transmission Date: 20071010
  Serious: Yes (Hospitalization)
  Sender: FDA-Public Use
  Company Number: B0469789A

PATIENT
  Age: 92 Year
  Sex: Female
  Weight: 42 kg

DRUGS (16)
  1. AUGMENTIN '125' [Suspect]
     Route: 048
     Dates: start: 20070329, end: 20070401
  2. CORTANCYL [Suspect]
     Route: 048
     Dates: start: 20040401
  3. INDAPAMIDE [Suspect]
     Route: 048
     Dates: end: 20070401
  4. MOTILIUM [Suspect]
     Route: 048
     Dates: end: 20070401
  5. PREVISCAN [Suspect]
     Route: 048
     Dates: start: 20040401
  6. VOLTAREN [Suspect]
     Route: 061
     Dates: start: 20070326, end: 20070401
  7. CACIT D3 [Concomitant]
     Dates: end: 20070401
  8. DAFALGAN [Concomitant]
     Dates: end: 20070401
  9. QUOTANE [Concomitant]
  10. DEDROGYL [Concomitant]
     Dates: end: 20070221
  11. STABLON [Concomitant]
     Dates: end: 20070221
  12. XALATAN [Concomitant]
  13. COSOPT [Concomitant]
  14. DIFFU-K [Concomitant]
  15. TEMESTA [Concomitant]
  16. PARIET [Concomitant]

REACTIONS (7)
  - HYPOKALAEMIA [None]
  - HYPONATRAEMIA [None]
  - IRON DEFICIENCY ANAEMIA [None]
  - PURPURA [None]
  - RASH MACULAR [None]
  - RASH PAPULAR [None]
  - VASCULAR PURPURA [None]
